FAERS Safety Report 4435170-2 (Version None)
Quarter: 2004Q3

REPORT INFORMATION
  Report Type: 
  Country: None (occurrence: None)
  Receive Date: 20040826
  Receipt Date: 20040817
  Transmission Date: 20050211
  Serious: Yes (Hospitalization)
  Sender: FDA-Public Use
  Company Number: 2004UW17483

PATIENT

DRUGS (2)
  1. SEROQUEL [Suspect]
     Dosage: 75 MG QD TPL
     Route: 064
     Dates: start: 20000101
  2. PRENATAL VITAMINS [Concomitant]

REACTIONS (5)
  - DEVELOPMENTAL DELAY [None]
  - DRUG EXPOSURE DURING PREGNANCY [None]
  - HYPOTONIA NEONATAL [None]
  - NEONATAL RESPIRATORY DISTRESS SYNDROME [None]
  - PREMATURE BABY [None]
